FAERS Safety Report 25388304 (Version 1)
Quarter: 2025Q2

REPORT INFORMATION
  Report Type: Report from Study
  Country: CA (occurrence: CA)
  Receive Date: 20250603
  Receipt Date: 20250603
  Transmission Date: 20250717
  Serious: Yes (Other)
  Sender: ROCHE
  Company Number: CA-ROCHE-10000136663

PATIENT
  Sex: Male

DRUGS (1)
  1. OCREVUS [Suspect]
     Active Substance: OCRELIZUMAB
     Indication: Relapsing-remitting multiple sclerosis
     Dosage: MORE DOSAGE INFORMATION IS 300 MG AT DAY 0 AND 14, THEN 600 MG EVERY 6 MONTH
     Route: 042
     Dates: start: 20190716

REACTIONS (22)
  - Pulmonary thrombosis [Not Recovered/Not Resolved]
  - Hernia [Unknown]
  - Burning sensation [Unknown]
  - Dyspnoea [Unknown]
  - Chest pain [Unknown]
  - Swelling [Unknown]
  - Peripheral swelling [Unknown]
  - Myalgia [Unknown]
  - Psoriasis [Unknown]
  - Fatigue [Unknown]
  - Memory impairment [Not Recovered/Not Resolved]
  - Muscle spasms [Not Recovered/Not Resolved]
  - Insomnia [Unknown]
  - Asthenia [Not Recovered/Not Resolved]
  - Dysarthria [Unknown]
  - Monoparesis [Unknown]
  - Multiple sclerosis [Unknown]
  - Pulmonary embolism [Unknown]
  - Sensory loss [Unknown]
  - Pulmonary hypertension [Unknown]
  - Sedation [Unknown]
  - Headache [Unknown]
